FAERS Safety Report 13874732 (Version 1)
Quarter: 2017Q3

REPORT INFORMATION
  Report Type: Spontaneous
  Country: US (occurrence: US)
  Receive Date: 20170816
  Receipt Date: 20170816
  Transmission Date: 20171127
  Serious: No
  Sender: FDA-Public Use
  Company Number: US-ROCHE-1366149

PATIENT
  Sex: Female

DRUGS (1)
  1. LUCENTIS [Suspect]
     Active Substance: RANIBIZUMAB
     Indication: EYE SWELLING
     Dosage: RIGHT EYE
     Route: 065

REACTIONS (11)
  - Visual impairment [Unknown]
  - Feeling cold [Unknown]
  - Anaemia [Unknown]
  - Seasonal allergy [Unknown]
  - Palpitations [Unknown]
  - Vitreous floaters [Recovered/Resolved]
  - Asthenia [Recovered/Resolved]
  - Nausea [Recovered/Resolved]
  - Arthralgia [Unknown]
  - Fall [Unknown]
  - Muscular weakness [Unknown]
